FAERS Safety Report 10024159 (Version 1)
Quarter: 2014Q1

REPORT INFORMATION
  Report Type: Spontaneous
  Country: US (occurrence: US)
  Receive Date: 20140320
  Receipt Date: 20140320
  Transmission Date: 20141002
  Serious: No
  Sender: FDA-Public Use
  Company Number: US-PFIZER INC-2014076657

PATIENT
  Age: 54 Year
  Sex: Male
  Weight: 79.37 kg

DRUGS (2)
  1. VIAGRA [Suspect]
     Indication: ERECTILE DYSFUNCTION
     Dosage: 50 MG, AS NEEDED
     Dates: start: 201401, end: 2014
  2. AVONEX [Concomitant]
     Indication: MULTIPLE SCLEROSIS
     Dosage: 30 UG, WEEKLY

REACTIONS (1)
  - Drug ineffective [Unknown]
